FAERS Safety Report 5995997-2 (Version None)
Quarter: 2008Q4

REPORT INFORMATION
  Report Type: 
  Country: None (occurrence: None)
  Receive Date: 20081212
  Receipt Date: 20081031
  Transmission Date: 20090506
  Serious: No
  Sender: FDA-Public Use
  Company Number: US-ABBOTT-08P-163-0480217-00

PATIENT
  Sex: Male
  Weight: 68.1 kg

DRUGS (3)
  1. HUMIRA [Suspect]
     Indication: RHEUMATOID ARTHRITIS
     Dates: start: 20080501
  2. METHOTREXATE [Suspect]
     Indication: RHEUMATOID ARTHRITIS
     Dosage: TAKE EVERY MONDAY
     Route: 048
     Dates: start: 19990101, end: 20080714
  3. METHOTREXATE [Suspect]
     Route: 048
     Dates: start: 20080728

REACTIONS (5)
  - ASTHENIA [None]
  - FLUID RETENTION [None]
  - JOINT SWELLING [None]
  - NAUSEA [None]
  - OEDEMA PERIPHERAL [None]
